FAERS Safety Report 4865869-5 (Version None)
Quarter: 2005Q4

REPORT INFORMATION
  Report Type: 
  Country: None (occurrence: None)
  Receive Date: 20051220
  Receipt Date: 20051121
  Transmission Date: 20060501
  Serious: Yes (Life-Threatening, Other)
  Sender: FDA-Public Use
  Company Number: 2005159150

PATIENT
  Age: 45 Year
  Sex: Male

DRUGS (4)
  1. ALPRAZOLAM [Suspect]
     Indication: ILL-DEFINED DISORDER
     Dosage: 0.5 MG, ORAL
     Route: 048
     Dates: start: 20051018, end: 20051018
  2. CLONAZEPAM [Suspect]
     Indication: ANXIETY
     Dosage: 0.5 TO 1.5 MG DAILY, ORAL
     Route: 048
  3. ABILIFY [Suspect]
     Indication: PSYCHOTIC DISORDER
     Dosage: 10 MG (10 MG, 1 IN 1 D), ORAL
     Route: 048
     Dates: start: 20051018, end: 20051018
  4. TRILAFON [Suspect]
     Indication: PSYCHOTIC DISORDER
     Dosage: 4 MG (4 MG, 1 IN1 D), ORAL
     Route: 048
     Dates: end: 20051017

REACTIONS (5)
  - DIZZINESS [None]
  - DRUG INTERACTION [None]
  - FATIGUE [None]
  - SYNCOPE [None]
  - VISION BLURRED [None]
